FAERS Safety Report 24336158 (Version 1)
Quarter: 2024Q3

REPORT INFORMATION
  Report Type: Report from Study
  Country: ID (occurrence: ID)
  Receive Date: 20240919
  Receipt Date: 20240919
  Transmission Date: 20241016
  Serious: No
  Sender: ROCHE
  Company Number: ID-ROCHE-3427353

PATIENT
  Age: 48 Year
  Sex: Male

DRUGS (10)
  1. OSELTAMIVIR [Suspect]
     Active Substance: OSELTAMIVIR
     Indication: COVID-19
     Route: 065
  2. ZINC [Concomitant]
     Active Substance: ZINC
  3. AZITROMISIN [Concomitant]
  4. POVIDONE-IODINE [Concomitant]
     Active Substance: POVIDONE-IODINE
  5. SEFIKSIM [Concomitant]
  6. RAMIPRIL [Concomitant]
     Active Substance: RAMIPRIL
  7. OMEPRAZOLE [Concomitant]
     Active Substance: OMEPRAZOLE
  8. ATORVASTATIN [Concomitant]
     Active Substance: ATORVASTATIN
  9. HEPARIN [Concomitant]
     Active Substance: HEPARIN SODIUM
  10. LORAZEPAM [Concomitant]
     Active Substance: LORAZEPAM

REACTIONS (4)
  - Off label use [Unknown]
  - Insomnia [Unknown]
  - Alanine aminotransferase increased [Unknown]
  - Aspartate aminotransferase increased [Unknown]
